FAERS Safety Report 5668437-0 (Version None)
Quarter: 2008Q1

REPORT INFORMATION
  Report Type: 
  Country: None (occurrence: None)
  Receive Date: 20080315
  Receipt Date: 20080225
  Transmission Date: 20080703
  Serious: No
  Sender: FDA-Public Use
  Company Number: US-ABBOTT-08P-163-0439932-00

PATIENT

DRUGS (1)
  1. HUMIRA 20 MG/0.4 ML PRE-FILLED SYRINGE [Suspect]
     Indication: PSORIASIS
     Route: 058

REACTIONS (4)
  - ERYSIPELAS [None]
  - FATIGUE [None]
  - RASH [None]
  - SWELLING FACE [None]
